FAERS Safety Report 7544956-7 (Version None)
Quarter: 2011Q2

REPORT INFORMATION
  Report Type: 
  Country: None (occurrence: None)
  Receive Date: 20110614
  Receipt Date: 20091122
  Transmission Date: 20111010
  Serious: Yes (Other)
  Sender: FDA-Public Use
  Company Number: US-BAYER-200940684NA

PATIENT
  Age: 77 Year
  Sex: Female
  Weight: 74 kg

DRUGS (16)
  1. PLASMA [Concomitant]
     Dosage: 2 U, UNK
     Route: 042
     Dates: start: 20020222
  2. HUMULIN R [Concomitant]
     Dosage: 6 UNITS
     Route: 042
     Dates: start: 20020222, end: 20020222
  3. RED BLOOD CELLS [Concomitant]
     Dosage: 4 U, UNK
     Route: 042
     Dates: start: 20020222
  4. ZOCOR [Concomitant]
     Dosage: 20 MG AT HOUR OF SLEEP
     Route: 048
  5. GLUCATROL XL [Concomitant]
     Dosage: 5 MG, QD
     Route: 048
  6. TRAZODONE HCL [Concomitant]
     Dosage: 50 MG, QD
     Route: 048
  7. ATACAND [Concomitant]
     Dosage: 32 MG, QD
     Route: 048
  8. FENTANYL [Concomitant]
     Dosage: 100/50/1/100
     Route: 042
     Dates: start: 20020222, end: 20020222
  9. TRASYLOL [Suspect]
     Indication: AORTIC VALVE REPLACEMENT
     Dosage: 200 ML PUMP PRIME, 200 ML BOLUS THEN 50 ML/HOUR
     Route: 042
     Dates: start: 20020222, end: 20020222
  10. ANCEF [Concomitant]
     Dosage: 2 GRAMS
     Route: 042
     Dates: start: 20020222, end: 20020222
  11. TRASYLOL [Suspect]
     Indication: CORONARY ARTERY BYPASS
     Dosage: 1 ML INITIAL TEST DOSE
     Route: 042
     Dates: start: 20020222, end: 20020222
  12. LASIX [Concomitant]
     Dosage: 40 MG, BID
     Route: 048
  13. MOBIC [Concomitant]
     Dosage: 75 MG, QD
     Route: 048
  14. SYNTHROID [Concomitant]
     Dosage: 0.125 MG, QD
     Route: 048
  15. PROPOFOL [Concomitant]
     Dosage: 150 MG
     Route: 042
     Dates: start: 20020222, end: 20020222
  16. HEPARIN [Concomitant]
     Dosage: 23,000 UNITS
     Route: 042
     Dates: start: 20020222, end: 20020222

REACTIONS (12)
  - RENAL INJURY [None]
  - PAIN [None]
  - INJURY [None]
  - ANXIETY [None]
  - EMOTIONAL DISTRESS [None]
  - PSYCHIATRIC SYMPTOM [None]
  - UNEVALUABLE EVENT [None]
  - STRESS [None]
  - FEAR [None]
  - RENAL IMPAIRMENT [None]
  - ANHEDONIA [None]
  - RENAL FAILURE [None]
